FAERS Safety Report 8506157 (Version 2)
Quarter: 2013Q2

REPORT INFORMATION
  Report Type: Spontaneous
  Country: US (occurrence: US)
  Receive Date: 20120412
  Receipt Date: 20130403
  Transmission Date: 20140414
  Serious: Yes (Death, Hospitalization)
  Sender: FDA-Public Use
  Company Number: US-GLAXOSMITHKLINE-A0933058A

PATIENT
  Age: 47 Year
  Sex: Male

DRUGS (1)
  1. AVANDIA [Suspect]
     Indication: TYPE 2 DIABETES MELLITUS
     Dosage: 4MG UNKNOWN
     Route: 048
     Dates: start: 2004, end: 20091028

REACTIONS (6)
  - Cardiac death [Fatal]
  - Renal impairment [Unknown]
  - Dyspnoea [Unknown]
  - Chest pain [Unknown]
  - Myocardial infarction [Unknown]
  - Cardiac failure congestive [Unknown]
